FAERS Safety Report 7318940-2 (Version None)
Quarter: 2011Q1

REPORT INFORMATION
  Report Type: 
  Country: None (occurrence: None)
  Receive Date: 20110228
  Receipt Date: 20110223
  Transmission Date: 20110831
  Serious: Yes (Other)
  Sender: FDA-Public Use
  Company Number: US-SANOFI-AVENTIS-2011SA011737

PATIENT
  Age: 75 Year
  Sex: Male

DRUGS (5)
  1. RILUTEK [Suspect]
     Route: 048
     Dates: start: 20110101, end: 20110101
  2. COUMADIN [Suspect]
     Indication: HYPERTENSION
     Dosage: 5MG ORALLY ON MON, WED, THURSDAY, SATURDAY AND SUNDAY AND WARFARIN 7.5MG DAILY ON TUESDAY AND FRIDAY
  3. COUMADIN [Suspect]
     Indication: ATRIAL FLUTTER
     Dosage: 5MG ORALLY ON MON, WED, THURSDAY, SATURDAY AND SUNDAY AND WARFARIN 7.5MG DAILY ON TUESDAY AND FRIDAY
  4. RILUTEK [Suspect]
     Route: 048
     Dates: start: 20110101, end: 20110101
  5. RILUTEK [Suspect]
     Indication: AMYOTROPHIC LATERAL SCLEROSIS
     Route: 048
     Dates: start: 20101101, end: 20101101

REACTIONS (2)
  - INTERNATIONAL NORMALISED RATIO INCREASED [None]
  - DIARRHOEA [None]
